FAERS Safety Report 10668310 (Version 2)
Quarter: 2014Q4

REPORT INFORMATION
  Report Type: Spontaneous
  Country: IT (occurrence: IT)
  Receive Date: 20141222
  Receipt Date: 20141222
  Transmission Date: 20150529
  Serious: Yes (Other)
  Sender: FDA-Public Use
  Company Number: IT-CELGENE-083-21880-12090096

PATIENT

DRUGS (2)
  1. DEXAMETHASONE. [Concomitant]
     Active Substance: DEXAMETHASONE
     Indication: PLASMA CELL MYELOMA
     Route: 065
  2. REVLIMID [Suspect]
     Active Substance: LENALIDOMIDE
     Indication: PLASMA CELL MYELOMA
     Dosage: 25 MILLIGRAM
     Route: 048

REACTIONS (8)
  - Acute graft versus host disease [Unknown]
  - Neutropenia [Unknown]
  - Graft versus host disease [Unknown]
  - Chronic graft versus host disease [Unknown]
  - Toxicity to various agents [Unknown]
  - Plasma cell myeloma [Unknown]
  - Thrombocytopenia [Unknown]
  - Anaemia [Unknown]
